FAERS Safety Report 11433738 (Version 6)
Quarter: 2016Q4

REPORT INFORMATION
  Report Type: Report from Study
  Country: GB (occurrence: GB)
  Receive Date: 20150831
  Receipt Date: 20161210
  Transmission Date: 20170206
  Serious: Yes (Hospitalization, Other)
  Sender: FDA-Public Use
  Company Number: PHHO2015GB013365

PATIENT
  Age: 51 Year
  Sex: Male
  Weight: 94.1 kg

DRUGS (12)
  1. TETRACYCLINE [Suspect]
     Active Substance: TETRACYCLINE
     Indication: INFECTION
     Dosage: UNK
     Route: 048
     Dates: start: 20150810, end: 20150908
  2. EXOREX [Concomitant]
     Active Substance: COAL TAR
     Indication: DRY SKIN
     Dosage: DAILY
     Route: 061
     Dates: start: 20020101
  3. AIN457 [Suspect]
     Active Substance: SECUKINUMAB
     Indication: PSORIASIS
     Dosage: 150 MG, EVERY 4 WEEKS
     Route: 058
     Dates: start: 20141111, end: 20150203
  4. FOLIC ACID. [Concomitant]
     Active Substance: FOLIC ACID
     Indication: SUPPLEMENTATION THERAPY
     Dosage: 5 MG, QD
     Route: 048
     Dates: start: 2004
  5. DUAC [Concomitant]
     Active Substance: BENZOYL PEROXIDE\CLINDAMYCIN PHOSPHATE
     Indication: ACNE
     Dosage: TWICE DAILY
     Route: 061
     Dates: start: 20150721
  6. DUAC [Concomitant]
     Active Substance: BENZOYL PEROXIDE\CLINDAMYCIN PHOSPHATE
     Indication: RASH
  7. EMOLLIN [Concomitant]
     Indication: PRURITUS
  8. AIN457 [Suspect]
     Active Substance: SECUKINUMAB
     Dosage: 300 MG, EVERY 4 WEEKS
     Route: 058
     Dates: start: 20150303, end: 20150721
  9. ALPHOSYL [Concomitant]
     Indication: PSORIASIS
     Dosage: PRN
     Route: 061
     Dates: start: 20040108
  10. NIFEDIPINE. [Concomitant]
     Active Substance: NIFEDIPINE
     Indication: HYPERTENSION
     Dosage: 20 MG, QD
     Route: 048
     Dates: start: 20100101
  11. EXOREX [Concomitant]
     Active Substance: COAL TAR
     Indication: PRURITUS
  12. EMOLLIN [Concomitant]
     Indication: DRY SKIN
     Dosage: ONCE DAILY
     Route: 061
     Dates: start: 20140728

REACTIONS (2)
  - Glomerulonephritis proliferative [Recovering/Resolving]
  - Tubulointerstitial nephritis [Recovering/Resolving]

NARRATIVE: CASE EVENT DATE: 20150818
